FAERS Safety Report 5103057-8 (Version None)
Quarter: 2006Q3

REPORT INFORMATION
  Report Type: 
  Country: None (occurrence: None)
  Receive Date: 20060907
  Receipt Date: 20060825
  Transmission Date: 20061208
  Serious: Yes (Death)
  Sender: FDA-Public Use
  Company Number: 14664

PATIENT
  Age: 59 Year
  Sex: Male

DRUGS (1)
  1. HYDROMORPHONE HCL [Suspect]
     Indication: PAIN MANAGEMENT

REACTIONS (6)
  - BONE NEOPLASM [None]
  - BRAIN OEDEMA [None]
  - DRUG TOXICITY [None]
  - MULTIPLE MYELOMA [None]
  - PULMONARY OEDEMA [None]
  - RENAL FAILURE [None]
